FAERS Safety Report 6897800-5 (Version None)
Quarter: 2010Q3

REPORT INFORMATION
  Report Type: 
  Country: None (occurrence: None)
  Receive Date: 20100802
  Receipt Date: 20070728
  Transmission Date: 20110219
  Serious: No
  Sender: FDA-Public Use
  Company Number: US-PFIZER INC-2007063685

PATIENT
  Sex: Female
  Weight: 56.2 kg

DRUGS (7)
  1. LYRICA [Suspect]
     Indication: NERVE INJURY
     Dates: start: 20070727
  2. LYRICA [Suspect]
     Indication: FIBROMYALGIA
  3. MONTELUKAST SODIUM [Concomitant]
  4. ZYRTEC [Concomitant]
  5. TRAMADOL HYDROCHLORIDE [Concomitant]
  6. CYCLOBENZAPRINE HYDROCHLORIDE [Concomitant]
  7. TOPAMAX [Concomitant]

REACTIONS (2)
  - DIZZINESS [None]
  - NAUSEA [None]
